FAERS Safety Report 14987791 (Version 1)
Quarter: 2018Q2

REPORT INFORMATION
  Report Type: Spontaneous
  Country: US (occurrence: US)
  Receive Date: 20180608
  Receipt Date: 20180608
  Transmission Date: 20180711
  Serious: No
  Sender: FDA-Public Use
  Company Number: US-IPSEN BIOPHARMACEUTICALS, INC.-2018-06674

PATIENT
  Sex: Female

DRUGS (4)
  1. XERMELO [Suspect]
     Active Substance: TELOTRISTAT ETHYL
     Indication: CARCINOID TUMOUR
     Route: 048
     Dates: start: 20171027, end: 201711
  2. XERMELO [Suspect]
     Active Substance: TELOTRISTAT ETHYL
     Route: 048
     Dates: start: 201711
  3. LANREOTIDE AUTOGEL [Suspect]
     Active Substance: LANREOTIDE
     Indication: PRODUCT USED FOR UNKNOWN INDICATION
     Dosage: NOT REPORTED
     Route: 065
  4. DOXYCYCLINE. [Concomitant]
     Active Substance: DOXYCYCLINE

REACTIONS (4)
  - Fatigue [Unknown]
  - Asthenia [Unknown]
  - Diarrhoea [Unknown]
  - Flushing [Unknown]
